FAERS Safety Report 7051598-9 (Version None)
Quarter: 2010Q4

REPORT INFORMATION
  Report Type: 
  Country: None (occurrence: None)
  Receive Date: 20101018
  Receipt Date: 20101018
  Transmission Date: 20110411
  Serious: No
  Sender: FDA-Public Use
  Company Number: None

PATIENT
  Age: 66 Year
  Sex: Female
  Weight: 50.8029 kg

DRUGS (1)
  1. HYOMAX-SR [Suspect]
     Dosage: PO
     Route: 048

REACTIONS (4)
  - DIARRHOEA [None]
  - GASTROINTESTINAL DISORDER [None]
  - MEDICATION RESIDUE [None]
  - PAIN [None]
